FAERS Safety Report 8772625 (Version 1)
Quarter: 2012Q4

REPORT INFORMATION
  Report Type: Report from Study
  Country: DE (occurrence: DE)
  Receive Date: 20120905
  Receipt Date: 20120905
  Transmission Date: 20130627
  Serious: Yes (Death)
  Sender: FDA-Public Use
  Company Number: DE-CELGENEUS-062-21880-12072859

PATIENT
  Age: 78 Year
  Sex: Female

DRUGS (5)
  1. REVLIMID [Suspect]
     Indication: SECONDARY MALIGNANT NEOPLASM OF OTHER SPECIFIED SITES
     Route: 048
  2. REVLIMID [Suspect]
     Indication: LYMPHOMA
  3. REVLIMID [Suspect]
     Indication: NON-HODGKIN^S LYMPHOMA
  4. REVLIMID [Suspect]
     Indication: APLASTIC ANEMIA
  5. REVLIMID [Suspect]
     Indication: PURPURA

REACTIONS (1)
  - Death [Fatal]
